FAERS Safety Report 4406415-X (Version None)
Quarter: 2004Q3

REPORT INFORMATION
  Report Type: 
  Country: None (occurrence: None)
  Receive Date: 20040723
  Receipt Date: 20030723
  Transmission Date: 20050211
  Serious: No
  Sender: FDA-Public Use
  Company Number: JA/1-5919547

PATIENT

DRUGS (1)
  1. AVANDIA [Suspect]

REACTIONS (1)
  - WEIGHT INCREASED [None]
